FAERS Safety Report 5528564-5 (Version None)
Quarter: 2007Q4

REPORT INFORMATION
  Report Type: 
  Country: None (occurrence: None)
  Receive Date: 20071123
  Receipt Date: 20071025
  Transmission Date: 20080405
  Serious: Yes (Death)
  Sender: FDA-Public Use
  Company Number: 2007S1011077

PATIENT
  Age: 76 Year
  Sex: Male

DRUGS (9)
  1. CIPROFLOXACIN [Suspect]
     Indication: DRUG USE FOR UNKNOWN INDICATION
     Dosage: 250 MG;TWICE A DAY
  2. CLARITHROMYCIN [Suspect]
     Indication: DRUG USE FOR UNKNOWN INDICATION
     Dosage: 250 MG;TWICE A DAY
  3. CARBOPLATIN [Suspect]
     Indication: SMALL CELL LUNG CANCER STAGE UNSPECIFIED
     Dosage: INTRAVENOUS
     Route: 042
     Dates: start: 20060125, end: 20060125
  4. ETOPOSIDE [Suspect]
     Indication: SMALL CELL LUNG CANCER STAGE UNSPECIFIED
     Dosage: INTRAVENOUS
     Route: 042
     Dates: start: 20060125, end: 20060125
  5. BISOPROLOL FUMARATE [Concomitant]
  6. CO-AMOXICLAV (AUGMENTIN [Concomitant]
  7. DEXAMETHASONE TAB [Concomitant]
  8. DOMPERIDONE [Concomitant]
  9. OMEPRAZOLE [Concomitant]

REACTIONS (1)
  - NEUTROPENIC SEPSIS [None]
